FAERS Safety Report 8893915 (Version 2)
Quarter: 2012Q4

REPORT INFORMATION
  Report Type: 
  Country: JP (occurrence: JP)
  Receive Date: 20121108
  Receipt Date: 20121123
  Transmission Date: 20130627
  Serious: Yes (Hospitalization, Other)
  Sender: FDA-Public Use
  Company Number: JP-JNJFOC-20121101924

PATIENT
  Age: 65 Year
  Sex: Female

DRUGS (3)
  1. DOXORUBICIN HYDROCHLORIDE (DOXIL) [Suspect]
     Indication: OVARIAN CANCER
     Route: 042
  2. IRINOTECAN [Suspect]
     Indication: OVARIAN CANCER
     Route: 065
  3. GEMCITABINE [Suspect]
     Indication: OVARIAN CANCER
     Route: 065

REACTIONS (3)
  - Pneumocystis jiroveci pneumonia [Recovered/Resolved]
  - Ovarian cancer [Unknown]
  - Intestinal obstruction [Unknown]
